FAERS Safety Report 9311804 (Version 3)
Quarter: 2013Q2

REPORT INFORMATION
  Report Type: Report from Study
  Country: AU (occurrence: AU)
  Receive Date: 20130528
  Receipt Date: 20130607
  Transmission Date: 20140414
  Serious: Yes (Hospitalization, Other)
  Sender: FDA-Public Use
  Company Number: PHHY2013AU052343

PATIENT
  Age: 68 Year
  Sex: Female
  Weight: 50 kg

DRUGS (8)
  1. ACLASTA [Suspect]
     Dosage: 5 MG, UNK
     Route: 042
     Dates: start: 20100921
  2. ACLASTA [Suspect]
     Dosage: 5 MG, UNK
     Route: 042
     Dates: start: 20120125
  3. CARTIA [Concomitant]
     Dosage: UNK
     Route: 048
  4. DIAFORMIN [Concomitant]
     Dosage: UNK
     Route: 048
  5. EZETROL [Concomitant]
     Dosage: UNK
     Route: 048
  6. MOVICOL [Concomitant]
     Dosage: UNK
     Route: 048
  7. PRISTIQ [Concomitant]
     Dosage: UNK
     Route: 048
  8. STEMETIL [Concomitant]
     Dosage: UNK
     Route: 048

REACTIONS (11)
  - Cerebrovascular accident [Recovered/Resolved]
  - Speech disorder [Recovered/Resolved]
  - Disturbance in attention [Recovered/Resolved]
  - Transient ischaemic attack [Recovered/Resolved]
  - Bone density decreased [Not Recovered/Not Resolved]
  - Oropharyngeal pain [Recovered/Resolved]
  - Sneezing [Recovered/Resolved]
  - Stress [Unknown]
  - Nasopharyngitis [Recovered/Resolved]
  - Pain [Recovered/Resolved]
  - Fatigue [Unknown]
